FAERS Safety Report 14663655 (Version 1)
Quarter: 2018Q1

REPORT INFORMATION
  Report Type: Spontaneous
  Country: US (occurrence: US)
  Receive Date: 20180321
  Receipt Date: 20180321
  Transmission Date: 20180509
  Serious: No
  Sender: FDA-Public Use
  Company Number: US-PFIZER INC-2018113837

PATIENT
  Sex: Female

DRUGS (1)
  1. DEPO-PROVERA [Suspect]
     Active Substance: MEDROXYPROGESTERONE ACETATE
     Indication: OVARIAN CYST
     Dosage: 150 MG/ML

REACTIONS (3)
  - Migraine [Unknown]
  - Product use in unapproved indication [Unknown]
  - Osteopenia [Unknown]
